FAERS Safety Report 7202530-6 (Version None)
Quarter: 2010Q4

REPORT INFORMATION
  Report Type: 
  Country: None (occurrence: None)
  Receive Date: 20101229
  Receipt Date: 20101220
  Transmission Date: 20110411
  Serious: Yes (Hospitalization)
  Sender: FDA-Public Use
  Company Number: US-MERCK-1007USA02429

PATIENT
  Age: 67 Year
  Sex: Male

DRUGS (6)
  1. JANUMET [Suspect]
     Route: 048
     Dates: start: 20090804, end: 20100614
  2. COZAAR [Concomitant]
     Route: 048
  3. CRESTOR [Concomitant]
     Route: 065
  4. FENOFIBRATE [Concomitant]
     Route: 065
  5. METHOCARBAMOL [Concomitant]
     Route: 065
  6. METOPROLOL [Concomitant]
     Route: 065

REACTIONS (2)
  - BLOOD GLUCOSE INCREASED [None]
  - DRUG INEFFECTIVE [None]
